FAERS Safety Report 7543256-9 (Version None)
Quarter: 2011Q2

REPORT INFORMATION
  Report Type: 
  Country: None (occurrence: None)
  Receive Date: 20110613
  Receipt Date: 20110530
  Transmission Date: 20111010
  Serious: Yes (Hospitalization, Other)
  Sender: FDA-Public Use
  Company Number: CA-JNJFOC-20110601431

PATIENT
  Sex: Female
  Weight: 73 kg

DRUGS (2)
  1. REMICADE [Suspect]
     Indication: COLITIS ULCERATIVE
     Dosage: 100MG/VIAL
     Route: 042
     Dates: start: 20110418
  2. BENADRYL [Concomitant]
     Indication: PREMEDICATION
     Route: 042

REACTIONS (5)
  - INFUSION RELATED REACTION [None]
  - ABDOMINAL PAIN [None]
  - VOMITING [None]
  - HOSPITALISATION [None]
  - PRURITUS [None]
